FAERS Safety Report 4752743-8 (Version None)
Quarter: 2005Q3

REPORT INFORMATION
  Report Type: 
  Country: None (occurrence: None)
  Receive Date: 20050823
  Receipt Date: 20050810
  Transmission Date: 20060218
  Serious: Yes (Hospitalization, Other)
  Sender: FDA-Public Use
  Company Number: 2005086839

PATIENT
  Age: 34 Year
  Sex: Female
  Weight: 145.151 kg

DRUGS (31)
  1. DEPO-PROVERA [Suspect]
     Indication: CONTRACEPTION
     Dosage: SEE IMAGE
     Route: 030
     Dates: start: 19940901, end: 19940901
  2. DEPO-PROVERA [Suspect]
     Indication: CONTRACEPTION
     Dosage: SEE IMAGE
     Route: 030
     Dates: start: 20000404, end: 20000404
  3. DEPO-PROVERA [Suspect]
     Indication: CONTRACEPTION
     Dosage: SEE IMAGE
     Route: 030
     Dates: start: 20000601, end: 20000601
  4. DEPO-PROVERA [Suspect]
     Indication: CONTRACEPTION
     Dosage: SEE IMAGE
     Route: 030
     Dates: start: 20000909, end: 20000909
  5. DEPO-PROVERA [Suspect]
     Indication: CONTRACEPTION
     Dosage: SEE IMAGE
     Route: 030
     Dates: start: 20010221, end: 20010221
  6. DEPO-PROVERA [Suspect]
     Indication: CONTRACEPTION
     Dosage: SEE IMAGE
     Route: 030
     Dates: start: 20010814, end: 20010814
  7. DEPO-PROVERA [Suspect]
     Indication: CONTRACEPTION
     Dosage: SEE IMAGE
     Route: 030
     Dates: start: 20011101, end: 20011101
  8. DEPO-PROVERA [Suspect]
     Indication: CONTRACEPTION
     Dosage: SEE IMAGE
     Route: 030
     Dates: start: 20020122, end: 20020122
  9. DEPO-PROVERA [Suspect]
     Indication: CONTRACEPTION
     Dosage: SEE IMAGE
     Route: 030
     Dates: start: 20020907, end: 20020907
  10. DEPO-PROVERA [Suspect]
     Indication: CONTRACEPTION
     Dosage: SEE IMAGE
     Route: 030
     Dates: start: 20021216, end: 20021216
  11. DEPO-PROVERA [Suspect]
     Indication: CONTRACEPTION
     Dosage: SEE IMAGE
     Route: 030
     Dates: start: 20030307, end: 20030307
  12. DEPO-PROVERA [Suspect]
     Indication: CONTRACEPTION
     Dosage: SEE IMAGE
     Route: 030
     Dates: start: 20030529, end: 20030529
  13. DEPO-PROVERA [Suspect]
     Indication: CONTRACEPTION
     Dosage: SEE IMAGE
     Route: 030
     Dates: start: 20030820, end: 20030820
  14. DEPO-PROVERA [Suspect]
     Indication: CONTRACEPTION
     Dosage: SEE IMAGE
     Route: 030
     Dates: start: 20040126, end: 20040126
  15. DEPO-PROVERA [Suspect]
     Indication: CONTRACEPTION
     Dosage: SEE IMAGE
     Route: 030
     Dates: start: 20040419, end: 20040419
  16. DEPO-PROVERA [Suspect]
     Indication: CONTRACEPTION
     Dosage: SEE IMAGE
     Route: 030
     Dates: start: 20040708, end: 20040708
  17. DEPO-PROVERA [Suspect]
     Indication: CONTRACEPTION
     Dosage: SEE IMAGE
     Route: 030
     Dates: start: 20040929, end: 20040929
  18. DEPO-PROVERA [Suspect]
  19. DEPO-PROVERA [Suspect]
  20. DEPO-PROVERA [Suspect]
  21. DEPO-PROVERA [Suspect]
  22. DEPO-PROVERA [Suspect]
  23. DEPO-PROVERA [Suspect]
  24. DEPO-PROVERA [Concomitant]
  25. DEPO-PROVERA [Suspect]
  26. DEPO-PROVERA [Suspect]
  27. DEPO-PROVERA [Suspect]
  28. DEPO-PROVERA [Suspect]
  29. DEPO-PROVERA [Suspect]
  30. DEPO-PROVERA [Suspect]
  31. DEPO-PROVERA [Suspect]

REACTIONS (17)
  - AMENORRHOEA [None]
  - ASTHMA [None]
  - BACK PAIN [None]
  - BREAST TENDERNESS [None]
  - FEELING ABNORMAL [None]
  - GALLBLADDER DISORDER [None]
  - GASTROOESOPHAGEAL REFLUX DISEASE [None]
  - GENITAL PRURITUS FEMALE [None]
  - HERNIA [None]
  - IRRITABILITY [None]
  - MUSCLE SPASMS [None]
  - MYALGIA [None]
  - PAIN IN EXTREMITY [None]
  - POLLAKIURIA [None]
  - URINARY TRACT INFECTION [None]
  - VAGINAL DISCHARGE [None]
  - WEIGHT INCREASED [None]
